FAERS Safety Report 22360030 (Version 1)
Quarter: 2023Q2

REPORT INFORMATION
  Report Type: Spontaneous
  Country: US (occurrence: US)
  Receive Date: 20230524
  Receipt Date: 20230524
  Transmission Date: 20230722
  Serious: Yes (Hospitalization)
  Sender: FDA-Public Use
  Company Number: US-JNJFOC-20230544322

PATIENT
  Age: 40 Year
  Sex: Male

DRUGS (1)
  1. LOPERAMIDE HYDROCHLORIDE [Suspect]
     Active Substance: LOPERAMIDE HYDROCHLORIDE
     Indication: Product used for unknown indication
     Dosage: 48-84 TABLETS OF 2 MG LOPERAMIDE DAILY OVER THE PAST SEVERAL MONTHS
     Route: 048

REACTIONS (4)
  - Syncope [Unknown]
  - Electrocardiogram QT prolonged [Unknown]
  - Ventricular tachycardia [Unknown]
  - Overdose [Unknown]
